FAERS Safety Report 8115628-5 (Version None)
Quarter: 2012Q1

REPORT INFORMATION
  Report Type: 
  Country: None (occurrence: None)
  Receive Date: 20120206
  Receipt Date: 20120125
  Transmission Date: 20120608
  Serious: Yes (Life-Threatening)
  Sender: FDA-Public Use
  Company Number: RU-TEVA-320551ISR

PATIENT
  Sex: Male
  Weight: 62 kg

DRUGS (3)
  1. INDAP [Concomitant]
     Indication: HYPERTENSION
     Route: 048
     Dates: start: 20091104, end: 20100201
  2. WARFARIN SODIUM [Suspect]
     Indication: DEEP VEIN THROMBOSIS
     Dosage: 1/3/5 MG; DAILY DOSE: 6-7MG
     Route: 048
     Dates: start: 20091026, end: 20100131
  3. ENALAPRIL MALEATE [Concomitant]
     Indication: HYPERTENSION
     Route: 048
     Dates: start: 20091022, end: 20100201

REACTIONS (5)
  - BLEEDING VARICOSE VEIN [None]
  - MELAENA [None]
  - LOSS OF CONSCIOUSNESS [None]
  - ASTHENIA [None]
  - DIZZINESS [None]
